FAERS Safety Report 5667302-2 (Version None)
Quarter: 2008Q1

REPORT INFORMATION
  Report Type: 
  Country: None (occurrence: None)
  Receive Date: 20080315
  Receipt Date: 20080116
  Transmission Date: 20080703
  Serious: No
  Sender: FDA-Public Use
  Company Number: US-ABBOTT-08P-163-0433998-00

PATIENT
  Sex: Female
  Weight: 70.824 kg

DRUGS (16)
  1. HUMIRA [Suspect]
     Indication: RHEUMATOID ARTHRITIS
     Route: 058
     Dates: start: 20060101
  2. HUMIRA [Suspect]
     Route: 058
     Dates: start: 20031001, end: 20060101
  3. AMOXICILLIN [Suspect]
     Indication: DENTAL TREATMENT
     Route: 048
     Dates: start: 20070701, end: 20071201
  4. AMOXICILLIN [Suspect]
     Indication: EAR INFECTION
  5. ACETYLSALICYLIC ACID [Suspect]
     Indication: CARDIAC PACEMAKER INSERTION
     Route: 048
     Dates: end: 20071201
  6. ACETYLSALICYLIC ACID [Suspect]
     Indication: CARDIOMYOPATHY
     Route: 048
     Dates: start: 20080117
  7. CARVEDILOL [Concomitant]
     Indication: DRUG USE FOR UNKNOWN INDICATION
  8. RAMIPRIL [Concomitant]
     Indication: DRUG USE FOR UNKNOWN INDICATION
  9. LEVOTHYROXINE SODIUM [Concomitant]
     Indication: DRUG USE FOR UNKNOWN INDICATION
  10. FUROSEMIDE [Concomitant]
     Indication: DRUG USE FOR UNKNOWN INDICATION
  11. AMIODARONE HCL [Concomitant]
     Indication: DRUG USE FOR UNKNOWN INDICATION
  12. PRAVASTATIN SODIUM [Concomitant]
     Indication: DRUG USE FOR UNKNOWN INDICATION
  13. POTASSIUM CHLORIDE [Concomitant]
     Indication: DRUG USE FOR UNKNOWN INDICATION
  14. IBANDRONATE SODIUM [Concomitant]
     Indication: DRUG USE FOR UNKNOWN INDICATION
  15. IRON [Concomitant]
     Indication: DRUG USE FOR UNKNOWN INDICATION
  16. CALCIUM [Concomitant]
     Indication: DRUG USE FOR UNKNOWN INDICATION

REACTIONS (4)
  - EAR INFECTION [None]
  - PRURITUS [None]
  - RASH [None]
  - SCAB [None]
